FAERS Safety Report 6430786-6 (Version None)
Quarter: 2009Q4

REPORT INFORMATION
  Report Type: 
  Country: None (occurrence: None)
  Receive Date: 20091106
  Receipt Date: 20091022
  Transmission Date: 20100525
  Serious: Yes (Hospitalization)
  Sender: FDA-Public Use
  Company Number: JP-NAPPMUNDI-MAG-2009-0001133

PATIENT
  Sex: Male

DRUGS (1)
  1. OXYCODONE HCL PR TABLET [Suspect]
     Indication: CANCER PAIN

REACTIONS (3)
  - DIZZINESS [None]
  - FALL [None]
  - PELVIC FRACTURE [None]
